FAERS Safety Report 22126054 (Version 1)
Quarter: 2023Q1

REPORT INFORMATION
  Report Type: Spontaneous
  Country: US (occurrence: US)
  Receive Date: 20230322
  Receipt Date: 20230322
  Transmission Date: 20230418
  Serious: No
  Sender: FDA-Public Use
  Company Number: US-ALLERGAN-2217633US

PATIENT
  Age: 35 Year
  Sex: Female

DRUGS (2)
  1. LATISSE [Suspect]
     Active Substance: BIMATOPROST
     Indication: Growth of eyelashes
     Dosage: ACTUAL; ONE TIME (PUT IT ON ONLY ONE TIME AT NIGHT BEFORE BED; APPLIED ON LASH LINE)
     Dates: start: 20220518, end: 20220518
  2. MINERALS\VITAMINS [Concomitant]
     Active Substance: MINERALS\VITAMINS
     Indication: Product used for unknown indication

REACTIONS (4)
  - Eyelid vascular disorder [Recovered/Resolved]
  - Eyelid pain [Recovered/Resolved]
  - Erythema of eyelid [Recovered/Resolved]
  - Blepharal pigmentation [Recovered/Resolved]

NARRATIVE: CASE EVENT DATE: 20220519
